FAERS Safety Report 18270071 (Version 2)
Quarter: 2020Q4

REPORT INFORMATION
  Report Type: Spontaneous
  Country: US (occurrence: US)
  Receive Date: 20200916
  Receipt Date: 20201007
  Transmission Date: 20210113
  Serious: Yes (Hospitalization, Other)
  Sender: FDA-Public Use
  Company Number: US-009507513-2009USA004630

PATIENT
  Sex: Male

DRUGS (12)
  1. KEYTRUDA [Suspect]
     Active Substance: PEMBROLIZUMAB
     Indication: RENAL CANCER STAGE IV
     Dosage: 200 MILLIGRAM, Q3W
     Route: 042
     Dates: start: 20200608, end: 20200720
  2. VITAMINS (UNSPECIFIED) [Concomitant]
     Active Substance: VITAMINS
     Dosage: UNK, QD
  3. OXYCODONE [Concomitant]
     Active Substance: OXYCODONE
     Dosage: 5/325G
  4. KEYTRUDA [Suspect]
     Active Substance: PEMBROLIZUMAB
     Indication: METASTATIC RENAL CELL CARCINOMA
  5. CIALIS [Concomitant]
     Active Substance: TADALAFIL
     Dosage: 20 MILLIGRAM, PRN
  6. LEVOTHYROXINE SODIUM. [Concomitant]
     Active Substance: LEVOTHYROXINE SODIUM
     Dosage: 25 MILLIGRAM, QD
  7. BENICAR [Concomitant]
     Active Substance: OLMESARTAN MEDOXOMIL
     Dosage: 20 MILLIGRAM, QD
  8. INLYTA [Concomitant]
     Active Substance: AXITINIB
     Indication: RENAL CANCER STAGE IV
     Dosage: 5 MILLIGRAM, BID (ONCE AT MORNING AND ONCE AT NIGHT)
     Route: 048
     Dates: start: 20200624
  9. ATORVASTATIN [Concomitant]
     Active Substance: ATORVASTATIN
     Dosage: 40 MILLIGRAM, QD
  10. GABAPENIN [Concomitant]
     Active Substance: GABAPENTIN
     Dosage: 300 MILLIGRAM, QD
  11. MIRALAX [Concomitant]
     Active Substance: POLYETHYLENE GLYCOL 3350
     Dosage: UNK, PRN
  12. ONDANSETRON [Concomitant]
     Active Substance: ONDANSETRON
     Dosage: 4 MILLIGRAM, Q6H

REACTIONS (3)
  - Myasthenia gravis [Recovering/Resolving]
  - General physical health deterioration [Recovering/Resolving]
  - Weight fluctuation [Unknown]

NARRATIVE: CASE EVENT DATE: 2020
